FAERS Safety Report 17286949 (Version 1)
Quarter: 2020Q1

REPORT INFORMATION
  Report Type: Report from Study
  Country: US (occurrence: US)
  Receive Date: 20200120
  Receipt Date: 20200120
  Transmission Date: 20200409
  Serious: Yes (Hospitalization, Disabling, Other)
  Sender: FDA-Public Use
  Company Number: US-ROCHE-2519815

PATIENT
  Age: 41 Year
  Sex: Female

DRUGS (15)
  1. TIZANIDINE. [Concomitant]
     Active Substance: TIZANIDINE
  2. CLOBETASOL [Concomitant]
     Active Substance: CLOBETASOL
  3. NORETHINDRONE ACETATE AND ETHINYL ESTRADIOL [Concomitant]
     Active Substance: ETHINYL ESTRADIOL\NORETHINDRONE ACETATE
  4. ERGOCALCIFEROL. [Concomitant]
     Active Substance: ERGOCALCIFEROL
  5. SERTRALINE [Concomitant]
     Active Substance: SERTRALINE HYDROCHLORIDE
  6. DALFAMPRIDINE. [Concomitant]
     Active Substance: DALFAMPRIDINE
  7. LOVASTATIN. [Concomitant]
     Active Substance: LOVASTATIN
  8. PERCOCET [Concomitant]
     Active Substance: ACETAMINOPHEN\OXYCODONE HYDROCHLORIDE
     Route: 065
  9. QUETIAPINE. [Concomitant]
     Active Substance: QUETIAPINE
  10. METFORMIN [Concomitant]
     Active Substance: METFORMIN HYDROCHLORIDE
  11. ZOLPIDEM [Concomitant]
     Active Substance: ZOLPIDEM TARTRATE
  12. OCREVUS [Suspect]
     Active Substance: OCRELIZUMAB
     Indication: MULTIPLE SCLEROSIS
     Dosage: INFUSE 600 MG IV EVERY 6 MONTHS?SUBSEQUENT DOSE: 26/JUN/2019, 10/JUL/2019
     Route: 042
     Dates: start: 201906
  13. LIDOCAINE. [Concomitant]
     Active Substance: LIDOCAINE
  14. GABAPENTIN. [Concomitant]
     Active Substance: GABAPENTIN
  15. IBUPROFEN. [Concomitant]
     Active Substance: IBUPROFEN

REACTIONS (3)
  - Diplopia [Unknown]
  - Multiple sclerosis relapse [Unknown]
  - Disability [Unknown]

NARRATIVE: CASE EVENT DATE: 201909
